FAERS Safety Report 7948874-1 (Version None)
Quarter: 2011Q4

REPORT INFORMATION
  Report Type: 
  Country: None (occurrence: None)
  Receive Date: 20111130
  Receipt Date: 20111125
  Transmission Date: 20120403
  Serious: Yes (Death, Other)
  Sender: FDA-Public Use
  Company Number: BR-PFIZER INC-2011289446

PATIENT
  Sex: Male

DRUGS (1)
  1. VARENICLINE TARTRATE [Suspect]
     Indication: TOBACCO USER
     Route: 048

REACTIONS (5)
  - HALLUCINATION [None]
  - GASTROINTESTINAL CANCER METASTATIC [None]
  - HEPATIC CANCER METASTATIC [None]
  - AGITATION [None]
  - DRUG INTERACTION [None]
